FAERS Safety Report 5518087-1 (Version None)
Quarter: 2007Q4

REPORT INFORMATION
  Report Type: 
  Country: None (occurrence: None)
  Receive Date: 20071115
  Receipt Date: 20071105
  Transmission Date: 20080405
  Serious: Yes (Hospitalization)
  Sender: FDA-Public Use
  Company Number: PHBS2007IT18609

PATIENT
  Age: 62 Year
  Sex: Female

DRUGS (5)
  1. CYCLOSPORINE [Suspect]
     Indication: HEART TRANSPLANT
     Dosage: 200 MG/DAY
     Route: 065
  2. MYCOPHENOLATE MOFETIL [Suspect]
     Indication: HEART TRANSPLANT
     Dosage: 3 G/DAY
     Route: 065
  3. CORTICOSTEROIDS [Suspect]
     Indication: HEART TRANSPLANT
     Dosage: 20 MG/DAY
     Route: 065
  4. FUROSEMIDE [Suspect]
     Dosage: 50 MG/DAY
     Route: 065
  5. POTASSIUM CANRENOATE [Suspect]
     Dosage: 25 MG/DAY
     Route: 065

REACTIONS (9)
  - ARTERIOSPASM CORONARY [None]
  - ATRIAL FIBRILLATION [None]
  - ATRIOVENTRICULAR BLOCK COMPLETE [None]
  - CONFUSIONAL STATE [None]
  - DIZZINESS [None]
  - ELECTROCARDIOGRAM ST SEGMENT ABNORMAL [None]
  - HAEMOGLOBIN DECREASED [None]
  - VENTRICULAR HYPOKINESIA [None]
  - VENTRICULAR TACHYCARDIA [None]
